FAERS Safety Report 8052722 (Version 4)
Quarter: 2013Q2

REPORT INFORMATION
  Report Type: Spontaneous
  Country: US (occurrence: US)
  Receive Date: 20110725
  Receipt Date: 20130611
  Transmission Date: 20140414
  Serious: Yes (Hospitalization, Other)
  Sender: FDA-Public Use
  Company Number: US-ELI_LILLY_AND_COMPANY-US201107003786

PATIENT
  Age: 65 Year
  Sex: Female

DRUGS (13)
  1. HUMALOG LISPRO [Suspect]
     Indication: TYPE 2 DIABETES MELLITUS
     Dosage: UNK
     Dates: start: 20110202, end: 20110217
  2. SAXAGLIPTIN [Concomitant]
     Indication: TYPE 2 DIABETES MELLITUS
     Dosage: UNK
     Dates: start: 20101019
  3. PLACEBO [Concomitant]
     Dosage: UNK
     Dates: start: 20101019
  4. NOVOLOG [Concomitant]
     Indication: TYPE 2 DIABETES MELLITUS
     Dosage: UNK
     Dates: start: 20090518
  5. LANTUS [Concomitant]
     Dosage: 180 U, QD
     Dates: start: 20090601, end: 20110210
  6. LANTUS [Concomitant]
     Dosage: 200 U, QD
     Dates: start: 20110211
  7. ACTOS [Concomitant]
     Indication: TYPE 2 DIABETES MELLITUS
     Dosage: UNK
     Dates: start: 20101215, end: 20110211
  8. VOLTAREN                                /SCH/ [Concomitant]
     Dosage: UNK
     Dates: end: 20110211
  9. ASPIRIN [Concomitant]
  10. HYDRALAZINE [Concomitant]
  11. MORPHINE [Concomitant]
     Dosage: UNK
     Dates: start: 20110202, end: 20110203
  12. LASIX [Concomitant]
     Dosage: UNK
     Dates: start: 20110202, end: 20110204
  13. NITROGLYCERINE [Concomitant]
     Indication: CHEST PAIN

REACTIONS (13)
  - Renal failure acute [Recovered/Resolved with Sequelae]
  - Non-cardiac chest pain [Recovered/Resolved]
  - Pulmonary oedema [Not Recovered/Not Resolved]
  - Chest pain [Not Recovered/Not Resolved]
  - Suicidal ideation [Recovering/Resolving]
  - Asthma [Recovered/Resolved]
  - Reflux gastritis [Recovered/Resolved]
  - Cardiomegaly [Not Recovered/Not Resolved]
  - Tremor [Unknown]
  - Hyperventilation [Unknown]
  - Anxiety [Not Recovered/Not Resolved]
  - Blood glucose increased [Unknown]
  - Irritable bowel syndrome [Unknown]
